FAERS Safety Report 4935659-3 (Version None)
Quarter: 2006Q1

REPORT INFORMATION
  Report Type: 
  Country: None (occurrence: None)
  Receive Date: 20060307
  Receipt Date: 20051013
  Transmission Date: 20060701
  Serious: Yes (Hospitalization, Disabling, Other)
  Sender: FDA-Public Use
  Company Number: US-GLAXOSMITHKLINE-A0578167A

PATIENT
  Age: 79 Year
  Sex: Female
  Weight: 86.4 kg

DRUGS (9)
  1. REQUIP [Suspect]
     Indication: RESTLESS LEGS SYNDROME
     Dosage: 1MG PER DAY
     Route: 048
     Dates: start: 20050908, end: 20050101
  2. CELEXA [Concomitant]
     Indication: DEPRESSION
     Dosage: 20MG IN THE MORNING
     Route: 048
     Dates: start: 20000530
  3. SEROQUEL [Concomitant]
     Dosage: 25MG AT NIGHT
     Route: 048
     Dates: start: 20040804
  4. MAXZIDE [Concomitant]
     Indication: HYPERTENSION
     Dosage: 25MG PER DAY
     Route: 048
     Dates: start: 20021002
  5. NORVASC [Concomitant]
     Indication: HYPERTENSION
     Dosage: 10MG PER DAY
     Route: 048
     Dates: start: 20021002
  6. K-DUR 10 [Concomitant]
     Dosage: 20MEQ PER DAY
     Route: 048
     Dates: start: 20021002
  7. SYNTHROID [Concomitant]
     Indication: HYPOTHYROIDISM
     Dosage: 75MCG PER DAY
     Route: 048
     Dates: start: 20021002
  8. DARVOCET [Concomitant]
     Indication: ARTHRITIS
     Route: 048
  9. PRILOSEC [Concomitant]
     Dosage: 20MG PER DAY
     Route: 048
     Dates: start: 20021002

REACTIONS (3)
  - AGITATION [None]
  - CONFUSIONAL STATE [None]
  - MANIA [None]
